FAERS Safety Report 7522944-4 (Version None)
Quarter: 2011Q2

REPORT INFORMATION
  Report Type: 
  Country: None (occurrence: None)
  Receive Date: 20110603
  Receipt Date: 20110523
  Transmission Date: 20111010
  Serious: Yes (Hospitalization)
  Sender: FDA-Public Use
  Company Number: US-JNJFOC-20081106031

PATIENT
  Sex: Male
  Weight: 116.1 kg

DRUGS (15)
  1. CNTO 1275 [Suspect]
     Route: 058
     Dates: start: 20071010
  2. CNTO 1275 [Suspect]
     Route: 058
     Dates: start: 20060426
  3. CNTO 1275 [Suspect]
     Route: 058
     Dates: start: 20080103
  4. INDOCIN [Concomitant]
     Indication: PSORIATIC ARTHROPATHY
     Route: 048
     Dates: start: 19990101
  5. CNTO 1275 [Suspect]
     Indication: PSORIASIS
     Route: 058
     Dates: start: 20070620
  6. CNTO 1275 [Suspect]
     Route: 058
     Dates: start: 20080618
  7. CNTO 1275 [Suspect]
     Route: 058
     Dates: start: 20061017
  8. LISINOPRIL [Concomitant]
     Route: 048
     Dates: start: 20070620
  9. CNTO 1275 [Suspect]
     Route: 058
     Dates: start: 20060329
  10. CNTO 1275 [Suspect]
     Route: 058
     Dates: start: 20080911
  11. METFORMIN HCL [Concomitant]
     Route: 048
     Dates: start: 20071011, end: 20081216
  12. CNTO 1275 [Suspect]
     Route: 058
     Dates: start: 20080326
  13. CNTO 1275 [Suspect]
     Route: 058
     Dates: start: 20060712
  14. GLYBURIDE [Concomitant]
     Route: 048
     Dates: start: 20070628
  15. CNTO 1275 [Suspect]
     Route: 058
     Dates: start: 20070719

REACTIONS (3)
  - THROMBOSIS [None]
  - ENDOCARDITIS BACTERIAL [None]
  - RENAL INFARCT [None]
